FAERS Safety Report 4553030-3 (Version None)
Quarter: 2005Q1

REPORT INFORMATION
  Report Type: 
  Country: None (occurrence: None)
  Receive Date: 20050113
  Receipt Date: 20041221
  Transmission Date: 20050727
  Serious: Yes (Death, Life-Threatening, Other)
  Sender: FDA-Public Use
  Company Number: 2004094127

PATIENT
  Age: 62 Year
  Sex: Female

DRUGS (5)
  1. BEXTRA [Suspect]
     Indication: PAIN
     Dosage: 40 MG, (40 MG, 1 IN 1 D), ORAL
     Route: 048
     Dates: start: 20040906
  2. RAMIPRIL [Concomitant]
  3. CARBAMAZEPINE (CABAMAZEPINE) [Concomitant]
  4. FUROSEMIDE (FUROSEMIDE) [Concomitant]
  5. TEMAZEPAM [Concomitant]

REACTIONS (4)
  - ADENOCARCINOMA [None]
  - BONE MARROW DEPRESSION [None]
  - METASTASES TO BONE MARROW [None]
  - METASTATIC NEOPLASM [None]
